FAERS Safety Report 7320257-7 (Version None)
Quarter: 2011Q1

REPORT INFORMATION
  Report Type: 
  Country: None (occurrence: None)
  Receive Date: 20110228
  Receipt Date: 20110216
  Transmission Date: 20110831
  Serious: Yes (Hospitalization)
  Sender: FDA-Public Use
  Company Number: US-JNJFOC-20110206994

PATIENT
  Sex: Female

DRUGS (2)
  1. TYLENOL [Suspect]
     Indication: PAIN
     Dosage: HAD BEEN TAKING FOR SEVERAL MONTHS
     Route: 048
  2. TYLENOL [Suspect]
     Route: 048

REACTIONS (1)
  - HEPATITIS [None]
